FAERS Safety Report 6639618-4 (Version None)
Quarter: 2010Q1

REPORT INFORMATION
  Report Type: 
  Country: None (occurrence: None)
  Receive Date: 20100315
  Receipt Date: 20100301
  Transmission Date: 20100710
  Serious: Yes (Hospitalization, Other)
  Sender: FDA-Public Use
  Company Number: DSA_42701_2010

PATIENT
  Age: 67 Year
  Sex: Female

DRUGS (5)
  1. BUPROPION HCL [Suspect]
     Indication: MAJOR DEPRESSION
     Dosage: 150 MG QD; 300 MG QD, 150 MG QD
  2. BUPROPION HCL [Suspect]
     Indication: MAJOR DEPRESSION
     Dosage: 150 MG QD; 300 MG QD, 150 MG QD
  3. BUPROPION HCL [Suspect]
     Indication: MAJOR DEPRESSION
     Dosage: 150 MG QD; 300 MG QD, 150 MG QD
  4. OLANZAPINE [Suspect]
     Indication: MAJOR DEPRESSION
     Dosage: 10 MG QD, 5 MG QD
  5. VENLAFAXINE [Suspect]
     Indication: MAJOR DEPRESSION
     Dosage: 225 MG QD

REACTIONS (9)
  - AKATHISIA [None]
  - CHOKING [None]
  - COGWHEEL RIGIDITY [None]
  - DIZZINESS [None]
  - DYSTONIA [None]
  - GAIT DISTURBANCE [None]
  - MOTOR DYSFUNCTION [None]
  - PARKINSONISM [None]
  - TREMOR [None]
